FAERS Safety Report 7497502-0 (Version None)
Quarter: 2011Q2

REPORT INFORMATION
  Report Type: 
  Country: None (occurrence: None)
  Receive Date: 20110523
  Receipt Date: 20110510
  Transmission Date: 20111010
  Serious: Yes (Hospitalization)
  Sender: FDA-Public Use
  Company Number: US-UCBSA-029920

PATIENT
  Sex: Male

DRUGS (8)
  1. RESTORIL [Concomitant]
  2. ACTOS [Concomitant]
  3. PROCRIT [Concomitant]
  4. METHADONE HCL [Concomitant]
  5. DEXILANT [Concomitant]
  6. CIMZIA [Suspect]
     Indication: CROHN'S DISEASE
     Route: 058
     Dates: start: 20101201
  7. ZOLOFT [Concomitant]
  8. FLAGYL [Concomitant]

REACTIONS (1)
  - ENTEROCUTANEOUS FISTULA [None]
